FAERS Safety Report 7581157-0 (Version None)
Quarter: 2011Q2

REPORT INFORMATION
  Report Type: 
  Country: None (occurrence: None)
  Receive Date: 20110629
  Receipt Date: 20110617
  Transmission Date: 20111010
  Serious: Yes (Hospitalization, Other)
  Sender: FDA-Public Use
  Company Number: US-PFIZER INC-2011142013

PATIENT
  Sex: Male
  Weight: 91.7 kg

DRUGS (18)
  1. ANTINEOPLASTIC AGENTS [Suspect]
     Dosage: 20 MG, UNK
     Route: 041
     Dates: start: 20110310
  2. FISH OIL [Concomitant]
  3. TENORMIN [Concomitant]
     Dosage: UNK
  4. IBUPROFEN [Suspect]
     Indication: OSTEOARTHRITIS
     Dosage: 600 MG, 1X/DAY
     Dates: end: 20110114
  5. ASPIRIN [Suspect]
     Dosage: 81 MG, 1X/DAY
  6. ANTINEOPLASTIC AGENTS [Suspect]
     Indication: PROSTATE CANCER METASTATIC
     Dosage: 20 MG, UNK
     Route: 041
     Dates: start: 20110106
  7. ZOCOR [Concomitant]
  8. ZOMETA [Concomitant]
     Dosage: UNK
  9. ANTINEOPLASTIC AGENTS [Suspect]
     Dosage: 20 MG, UNK
     Route: 041
     Dates: start: 20110519
  10. PLAVIX [Suspect]
     Dosage: 75 MG, 1X/DAY
     Route: 048
  11. KEFLEX [Concomitant]
     Dosage: UNK
     Dates: start: 20110101
  12. MULTI-VITAMINS [Concomitant]
  13. PLAVIX [Suspect]
     Dosage: UNK
  14. FLAXSEED OIL [Concomitant]
  15. ANTINEOPLASTIC AGENTS [Suspect]
     Dosage: 20 MG, UNK
     Route: 041
  16. LUPRON [Concomitant]
     Dosage: 1 DOSE, 1X/DAY
     Dates: start: 20101216
  17. PREDNISONE [Concomitant]
  18. CHONDROITIN SULFATE / GLUCOSAMINE HCL / MINERALS NOS / VITAMINS NOS [Concomitant]
     Dosage: UNK

REACTIONS (9)
  - AGEUSIA [None]
  - GASTROINTESTINAL HAEMORRHAGE [None]
  - ASTHENIA [None]
  - ATRIAL FIBRILLATION [None]
  - ARRHYTHMIA [None]
  - OEDEMA PERIPHERAL [None]
  - FATIGUE [None]
  - CORONARY ARTERY OCCLUSION [None]
  - WEIGHT DECREASED [None]
